FAERS Safety Report 18952323 (Version 2)
Quarter: 2021Q1

REPORT INFORMATION
  Report Type: Spontaneous
  Country: US (occurrence: US)
  Receive Date: 20210301
  Receipt Date: 20210303
  Transmission Date: 20210420
  Serious: Yes (Other)
  Sender: FDA-Public Use
  Company Number: US-ASTELLAS-2021US006882

PATIENT
  Sex: Female

DRUGS (1)
  1. MYRBETRIQ [Suspect]
     Active Substance: MIRABEGRON
     Indication: PRODUCT USED FOR UNKNOWN INDICATION
     Dosage: 50 MG, ONCE DAILY (FORMULATION: EXTENDED?RELEASE TABLETS)
     Route: 065
     Dates: start: 202009

REACTIONS (3)
  - Blood pressure decreased [Unknown]
  - Dizziness [Unknown]
  - Presyncope [Unknown]

NARRATIVE: CASE EVENT DATE: 202009
